FAERS Safety Report 4562850-0 (Version None)
Quarter: 2005Q1

REPORT INFORMATION
  Report Type: 
  Country: None (occurrence: None)
  Receive Date: 20050121
  Receipt Date: 20050107
  Transmission Date: 20050727
  Serious: Yes (Hospitalization)
  Sender: FDA-Public Use
  Company Number: 2005007446

PATIENT
  Age: 74 Year
  Sex: Female

DRUGS (3)
  1. CELEBREX [Suspect]
     Indication: OSTEOARTHRITIS
     Dates: end: 20041201
  2. FLUVASTATIN (FLUVASTATIN) [Concomitant]
  3. RALOXIFENE HCL [Concomitant]

REACTIONS (2)
  - ANGINA UNSTABLE [None]
  - CORONARY ARTERY STENOSIS [None]
